FAERS Safety Report 20212712 (Version 1)
Quarter: 2021Q4

REPORT INFORMATION
  Report Type: Other
  Country: IE (occurrence: None)
  Receive Date: 20211221
  Receipt Date: 20211221
  Transmission Date: 20220304
  Serious: Yes (Other)
  Sender: FDA-Public Use
  Company Number: IE-ROCHE-2978269

PATIENT

DRUGS (1)
  1. TOCILIZUMAB [Suspect]
     Active Substance: TOCILIZUMAB
     Indication: Product used for unknown indication
     Route: 058

REACTIONS (4)
  - Injection site reaction [Recovering/Resolving]
  - Erythema [Recovering/Resolving]
  - Injection site paraesthesia [Recovering/Resolving]
  - Wrong technique in device usage process [Unknown]
